FAERS Safety Report 6100476-8 (Version None)
Quarter: 2009Q1

REPORT INFORMATION
  Report Type: 
  Country: None (occurrence: None)
  Receive Date: 20090303
  Receipt Date: 20090209
  Transmission Date: 20090719
  Serious: Yes (Hospitalization)
  Sender: FDA-Public Use
  Company Number: US-PFIZER INC-2009167591

PATIENT

DRUGS (2)
  1. SUNITINIB MALATE [Suspect]
     Indication: CENTRAL NERVOUS SYSTEM NEOPLASM
     Dosage: UNK
     Dates: start: 20081125
  2. LISINOPRIL [Suspect]

REACTIONS (2)
  - ABDOMINAL PAIN [None]
  - HYPOTENSION [None]
